FAERS Safety Report 9122574 (Version 2)
Quarter: 2013Q2

REPORT INFORMATION
  Report Type: Spontaneous
  Country: US (occurrence: None)
  Receive Date: 20130222
  Receipt Date: 20130415
  Transmission Date: 20140414
  Serious: Yes (Death)
  Sender: FDA-Public Use
  Company Number: 2013US-004581

PATIENT
  Age: 50 Year
  Sex: Male
  Weight: 98 kg

DRUGS (12)
  1. OMONTYS (PEGINESATIDE) SOLUTION FOR INJECTION [Suspect]
     Indication: NEPHROGENIC ANAEMIA
     Dosage: 15 MG, Q 4 WEEKS, INTRAVENOUS
     Route: 042
     Dates: start: 20130212, end: 20130212
  2. LANTUS (INSULIN GLARGINE) [Concomitant]
  3. HUMALOG (INSULIN LISPRO) [Concomitant]
  4. TRAMADOL (TRAMADOL) [Concomitant]
  5. ASPIRIN (ACETYLSALICYLIC ACID) [Concomitant]
  6. COREG [Concomitant]
  7. EPOGEN (EPOETIN ALFA) [Concomitant]
  8. VENOFER [Concomitant]
  9. BODY QUEST ICE CREAM [Concomitant]
  10. HEPARIN (HEPARIN) [Concomitant]
  11. ZEMPLAR (PARICALCITOL) [Concomitant]
  12. CLONIDINE (CLONIDINE) [Concomitant]

REACTIONS (6)
  - Cardiac arrest [None]
  - Burning sensation [None]
  - Dyspnoea [None]
  - Cyanosis [None]
  - Unresponsive to stimuli [None]
  - Haemoglobin decreased [None]
